FAERS Safety Report 4939356-X (Version None)
Quarter: 2006Q1

REPORT INFORMATION
  Report Type: 
  Country: None (occurrence: None)
  Receive Date: 20060306
  Receipt Date: 20060217
  Transmission Date: 20060701
  Serious: Yes (Life-Threatening, Hospitalization)
  Sender: FDA-Public Use
  Company Number: 8015013

PATIENT
  Age: 89 Year
  Sex: Female
  Weight: 40 kg

DRUGS (3)
  1. KEPPRA [Suspect]
     Indication: EPILEPSY
     Dosage: 1 DF 2/D
     Dates: start: 20060127, end: 20060131
  2. KEPPRA [Suspect]
     Indication: EPILEPSY
     Dates: start: 20060201
  3. DEPAKENE [Concomitant]

REACTIONS (2)
  - PNEUMONIA ASPIRATION [None]
  - STATUS EPILEPTICUS [None]
